FAERS Safety Report 12169525 (Version 7)
Quarter: 2017Q4

REPORT INFORMATION
  Report Type: Report from Study
  Country: US (occurrence: US)
  Receive Date: 20160310
  Receipt Date: 20171005
  Transmission Date: 20180320
  Serious: Yes (Hospitalization, Other)
  Sender: FDA-Public Use
  Company Number: US-ACTELION-A-US2016-132435

PATIENT
  Age: 68 Year
  Sex: Female
  Weight: 44.44 kg

DRUGS (10)
  1. OPSUMIT [Suspect]
     Active Substance: MACITENTAN
     Dosage: 10 MG, QD
     Route: 048
     Dates: start: 201705
  2. JAKAFI [Concomitant]
     Active Substance: RUXOLITINIB
  3. OPSUMIT [Suspect]
     Active Substance: MACITENTAN
     Indication: PULMONARY ARTERIAL HYPERTENSION
     Dosage: 10 MG, QD
     Route: 048
     Dates: start: 20140619
  4. COUMADIN [Concomitant]
     Active Substance: WARFARIN SODIUM
  5. LIDOCAINE. [Concomitant]
     Active Substance: LIDOCAINE
  6. LOVENOX [Concomitant]
     Active Substance: ENOXAPARIN SODIUM
  7. METHADONE [Concomitant]
     Active Substance: METHADONE HYDROCHLORIDE
  8. OXYCODONE [Concomitant]
     Active Substance: OXYCODONE
  9. RIOCIGUAT [Concomitant]
     Active Substance: RIOCIGUAT
  10. EXJADE [Concomitant]
     Active Substance: DEFERASIROX

REACTIONS (14)
  - Choking [Recovered/Resolved]
  - Alcohol poisoning [Recovered/Resolved]
  - Liver injury [Unknown]
  - Myocardial infarction [Unknown]
  - Flatulence [Unknown]
  - Pruritus generalised [Unknown]
  - Micturition urgency [Unknown]
  - Fatigue [Unknown]
  - Transfusion [Unknown]
  - Pain [Unknown]
  - Bone pain [Unknown]
  - Dyspnoea [Unknown]
  - Haematological malignancy [Unknown]
  - Abdominal distension [Unknown]

NARRATIVE: CASE EVENT DATE: 20160104
